FAERS Safety Report 7024751-8 (Version None)
Quarter: 2010Q4

REPORT INFORMATION
  Report Type: 
  Country: None (occurrence: None)
  Receive Date: 20101001
  Receipt Date: 20100927
  Transmission Date: 20110411
  Serious: Yes (Other)
  Sender: FDA-Public Use
  Company Number: JP-BAYER-201014774BYL

PATIENT

DRUGS (1)
  1. CIPROFLOXACIN HCL [Suspect]
     Indication: FEBRILE NEUTROPENIA
     Dosage: TOTAL DAILY DOSE: 600 MG
     Route: 042

REACTIONS (1)
  - GASTROINTESTINAL TOXICITY [None]
